FAERS Safety Report 26091356 (Version 1)
Quarter: 2025Q4

REPORT INFORMATION
  Report Type: Spontaneous
  Country: BR (occurrence: BR)
  Receive Date: 20251126
  Receipt Date: 20251126
  Transmission Date: 20260118
  Serious: Yes (Death)
  Sender: ABBVIE
  Company Number: BR-ABBVIE-6564197

PATIENT
  Age: 2 Year
  Sex: Male

DRUGS (2)
  1. SEVOFLURANE [Suspect]
     Active Substance: SEVOFLURANE
     Indication: Anaesthesia
     Route: 055
  2. NITROUS OXIDE [Concomitant]
     Active Substance: NITROUS OXIDE
     Indication: Anaesthesia

REACTIONS (4)
  - Cardiac arrest [Fatal]
  - Arrhythmia [Unknown]
  - Muscle rigidity [Unknown]
  - Hyperthermia [Unknown]
